FAERS Safety Report 24940159 (Version 1)
Quarter: 2025Q1

REPORT INFORMATION
  Report Type: Spontaneous
  Country: AU (occurrence: AU)
  Receive Date: 20250207
  Receipt Date: 20250207
  Transmission Date: 20250408
  Serious: Yes (Other)
  Sender: AMNEAL
  Company Number: AU-AMNEAL PHARMACEUTICALS-2025-AMRX-00420

PATIENT

DRUGS (2)
  1. ONGENTYS [Suspect]
     Active Substance: OPICAPONE
     Indication: Product used for unknown indication
     Route: 065
  2. BENSERAZIDE HYDROCHLORIDE\LEVODOPA [Concomitant]
     Active Substance: BENSERAZIDE HYDROCHLORIDE\LEVODOPA
     Indication: Product used for unknown indication
     Dosage: 100/25, 1.5 TABLETS FOUR TIMES A DAY
     Route: 065

REACTIONS (4)
  - Loss of consciousness [Recovering/Resolving]
  - Sudden onset of sleep [Unknown]
  - Dizziness [Unknown]
  - Somnolence [Unknown]
